FAERS Safety Report 22993459 (Version 3)
Quarter: 2024Q1

REPORT INFORMATION
  Report Type: Spontaneous
  Country: US (occurrence: US)
  Receive Date: 20230927
  Receipt Date: 20240124
  Transmission Date: 20240410
  Serious: No
  Sender: FDA-Public Use
  Company Number: US-Calliditas-2023CAL01259

PATIENT
  Age: 59 Year
  Sex: Male

DRUGS (2)
  1. TARPEYO [Suspect]
     Active Substance: BUDESONIDE
     Indication: IgA nephropathy
     Dosage: 16 MG (4 MG CAPSULES) ONCE DAILY
     Route: 048
     Dates: start: 20230915
  2. HYDROCORTISONE [Concomitant]
     Active Substance: HYDROCORTISONE
     Dosage: CHANGED TO 5 MG AM AND 2.5 MG PM

REACTIONS (4)
  - Hypoaesthesia [Not Recovered/Not Resolved]
  - Prescribed underdose [Unknown]
  - Dizziness [Unknown]
  - Insomnia [Unknown]
